FAERS Safety Report 8404064-X (Version None)
Quarter: 2012Q2

REPORT INFORMATION
  Report Type: 
  Country: None (occurrence: None)
  Receive Date: 20120601
  Receipt Date: 20120523
  Transmission Date: 20120825
  Serious: Yes (Hospitalization, Other)
  Sender: FDA-Public Use
  Company Number: US-ASTRAZENECA-2009SE32814

PATIENT
  Age: 51 Year
  Sex: Female

DRUGS (2)
  1. NEXIUM [Suspect]
     Route: 048
  2. OTHER MEDICATIONS [Concomitant]

REACTIONS (7)
  - DEPRESSION [None]
  - MALAISE [None]
  - FOOT FRACTURE [None]
  - OESOPHAGITIS [None]
  - DRUG DOSE OMISSION [None]
  - COUGH [None]
  - INTERVERTEBRAL DISC PROTRUSION [None]
